FAERS Safety Report 10101484 (Version 1)
Quarter: 2014Q2

REPORT INFORMATION
  Report Type: Report from Study
  Country: US (occurrence: US)
  Receive Date: 20140424
  Receipt Date: 20140424
  Transmission Date: 20141212
  Serious: Yes (Disabling, Other)
  Sender: FDA-Public Use
  Company Number: US-BAYER-2014-058833

PATIENT
  Age: 70 Year
  Sex: Male

DRUGS (8)
  1. SILDENAFIL [Suspect]
     Dosage: UNK
     Route: 048
     Dates: end: 20130508
  2. SIMVASTATIN [Concomitant]
     Dosage: 20 MG, HS
     Route: 048
     Dates: start: 20130507
  3. SIMVASTATIN [Concomitant]
     Dosage: 10 MG DAILY
     Dates: start: 20130508
  4. ZOLPIDEM [Concomitant]
     Dosage: 5 MG, HS
     Dates: start: 20130507
  5. ASPIRIN [Concomitant]
     Dosage: 325 MG, PRN (Q4-6HOUR)
     Route: 048
     Dates: start: 20130507
  6. BENADRYL [Concomitant]
     Dosage: 25 MG, UNK
     Dates: start: 20130508
  7. OMEPRAZOLE [Concomitant]
     Dosage: 20 MG, UNK
     Dates: start: 20130508
  8. VITAMIN D [Concomitant]
     Dosage: 1000 U, UNK
     Dates: start: 20130508

REACTIONS (1)
  - Optic ischaemic neuropathy [Not Recovered/Not Resolved]
